FAERS Safety Report 4460658-8 (Version None)
Quarter: 2004Q3

REPORT INFORMATION
  Report Type: 
  Country: None (occurrence: None)
  Receive Date: 20040928
  Receipt Date: 20040714
  Transmission Date: 20050211
  Serious: No
  Sender: FDA-Public Use
  Company Number: US-GLAXOSMITHKLINE-A0518218A

PATIENT
  Sex: Female

DRUGS (4)
  1. ADVAIR DISKUS 100/50 [Suspect]
     Dosage: 250MCG TWICE PER DAY
     Route: 055
  2. COMBIVENT [Concomitant]
  3. REFRESH PLUS [Concomitant]
  4. ALBUTEROL [Concomitant]

REACTIONS (1)
  - HAEMATOMA [None]
